FAERS Safety Report 5429042-4 (Version None)
Quarter: 2007Q3

REPORT INFORMATION
  Report Type: 
  Country: None (occurrence: None)
  Receive Date: 20070829
  Receipt Date: 20070212
  Transmission Date: 20080115
  Serious: No
  Sender: FDA-Public Use
  Company Number: A0639201A

PATIENT
  Age: 56 Year
  Sex: Female

DRUGS (1)
  1. MALARONE [Suspect]
     Indication: MALARIA PROPHYLAXIS
     Route: 048
     Dates: start: 20070113, end: 20070208

REACTIONS (6)
  - ANOREXIA [None]
  - ANXIETY [None]
  - CLAUSTROPHOBIA [None]
  - FEELING JITTERY [None]
  - INSOMNIA [None]
  - PHARMACEUTICAL PRODUCT COMPLAINT [None]
